FAERS Safety Report 6419526-4 (Version None)
Quarter: 2009Q4

REPORT INFORMATION
  Report Type: 
  Country: None (occurrence: None)
  Receive Date: 20091029
  Receipt Date: 20091019
  Transmission Date: 20100525
  Serious: Yes (Hospitalization, Other)
  Sender: FDA-Public Use
  Company Number: FR-PFIZER INC-2009285428

PATIENT
  Age: 56 Year

DRUGS (18)
  1. LYRICA [Suspect]
     Dosage: UNK
     Route: 048
     Dates: end: 20090616
  2. METRONIDAZOLE AND METRONIDAZOLE BENZOATE AND METRONIDAZOLE HYDROCHLORI [Suspect]
     Dosage: UNK
     Route: 048
     Dates: start: 20090529, end: 20090608
  3. LEDERFOLIN [Suspect]
     Dosage: UNK
     Route: 048
  4. VANCOMYCIN [Suspect]
     Dosage: UNK
     Route: 042
     Dates: start: 20090616, end: 20090702
  5. TRUVADA [Suspect]
     Indication: HIV INFECTION
     Dosage: UNK
     Route: 048
     Dates: start: 20090604
  6. ISENTRESS [Suspect]
     Indication: HIV INFECTION
     Dosage: UNK
     Route: 048
     Dates: start: 20090604
  7. CLAFORAN [Suspect]
     Dosage: UNK
     Route: 048
     Dates: start: 20090529, end: 20090608
  8. NEXIUM [Suspect]
     Dosage: UNK
     Route: 048
  9. ISOPTIN [Suspect]
     Dosage: UNK
     Route: 048
  10. TERCIAN [Suspect]
     Dosage: UNK
     Route: 048
     Dates: end: 20090616
  11. ZYPREXA [Suspect]
     Dosage: UNK
     Route: 048
  12. RIVOTRIL [Suspect]
     Dosage: UNK
     Route: 048
  13. NICOPATCH [Suspect]
     Dosage: 21 MG/24H, UNK
     Route: 062
  14. MAG 2 [Suspect]
     Dosage: UNK
     Route: 048
  15. IMOVANE [Suspect]
     Dosage: UNK
     Route: 048
  16. SERETIDE [Suspect]
     Dosage: UNK
     Route: 055
  17. DOLIPRANE [Suspect]
     Dosage: UNK G, UNK
     Route: 048
  18. VITAMIN B1 AND B6 [Suspect]
     Dosage: UNK
     Route: 048

REACTIONS (1)
  - THROMBOCYTOPENIA [None]
